FAERS Safety Report 8833223 (Version 1)
Quarter: 2012Q4

REPORT INFORMATION
  Report Type: 
  Country: US (occurrence: US)
  Receive Date: 20121010
  Receipt Date: 20121010
  Transmission Date: 20130627
  Serious: Yes (Other)
  Sender: FDA-Public Use
  Company Number: US-PFIZER INC-2012250336

PATIENT
  Age: 45 Year
  Sex: Female
  Weight: 88.44 kg

DRUGS (4)
  1. LYRICA [Suspect]
     Indication: NEUROPATHY PERIPHERAL
     Dosage: 300 mg, 3x/day
  2. LYRICA [Suspect]
     Indication: FIBROMYALGIA
  3. NEURONTIN [Suspect]
     Indication: NEUROPATHY PERIPHERAL
     Dosage: UNK
     Dates: start: 2011, end: 2011
  4. NEURONTIN [Suspect]
     Indication: FIBROMYALGIA

REACTIONS (7)
  - Mental impairment [Unknown]
  - Joint swelling [Unknown]
  - Oedema peripheral [Unknown]
  - Swelling face [Unknown]
  - Drug hypersensitivity [Unknown]
  - Confusional state [Unknown]
  - Movement disorder [Unknown]
